FAERS Safety Report 19473224 (Version 1)
Quarter: 2021Q2

REPORT INFORMATION
  Report Type: Spontaneous
  Country: US (occurrence: US)
  Receive Date: 20210629
  Receipt Date: 20210629
  Transmission Date: 20210717
  Serious: No
  Sender: FDA-Public Use
  Company Number: US-ASCEND THERAPEUTICS US, LLC-2113262

PATIENT
  Age: 70 Year
  Sex: Female

DRUGS (5)
  1. ESTROGEL [Suspect]
     Active Substance: ESTRADIOL
     Route: 061
  2. ESTROGEL [Suspect]
     Active Substance: ESTRADIOL
     Route: 061
     Dates: start: 2021
  3. ESTROGEL [Suspect]
     Active Substance: ESTRADIOL
     Indication: MENOPAUSAL SYMPTOMS
     Route: 061
  4. ESTROGEL [Suspect]
     Active Substance: ESTRADIOL
     Indication: MIGRAINE
     Route: 061
  5. ESTROGEL [Suspect]
     Active Substance: ESTRADIOL

REACTIONS (4)
  - Therapeutic response unexpected [None]
  - Intentional product use issue [None]
  - Off label use [None]
  - Product dose omission issue [None]
